FAERS Safety Report 5508814-1 (Version None)
Quarter: 2007Q4

REPORT INFORMATION
  Report Type: 
  Country: None (occurrence: None)
  Receive Date: 20071107
  Receipt Date: 20071029
  Transmission Date: 20080405
  Serious: Yes (Other)
  Sender: FDA-Public Use
  Company Number: US-JNJFOC-20070604766

PATIENT
  Sex: Female
  Weight: 44 kg

DRUGS (7)
  1. DURAGESIC-100 [Suspect]
     Route: 062
  2. DURAGESIC-100 [Suspect]
     Indication: FIBROMYALGIA
     Route: 062
  3. FENTANYL TRANSDERMAL SYSTEM [Suspect]
     Indication: FIBROMYALGIA
     Route: 062
  4. ULTRACET [Suspect]
     Indication: PAIN
     Dosage: 1 OR 2 AS NEEDED
     Route: 048
  5. COUMADIN [Concomitant]
     Dosage: EVERY OTHER DAY
     Route: 048
  6. COUMADIN [Concomitant]
     Indication: NONSPECIFIC REACTION
     Dosage: EVERY OTHER DAY
     Route: 048
  7. XANAX [Concomitant]
     Dosage: AS NEEDED
     Route: 048

REACTIONS (6)
  - ABDOMINAL PAIN UPPER [None]
  - DECREASED APPETITE [None]
  - INTERNATIONAL NORMALISED RATIO ABNORMAL [None]
  - NEURALGIA [None]
  - WEIGHT DECREASED [None]
  - WRONG TECHNIQUE IN DRUG USAGE PROCESS [None]
